FAERS Safety Report 14458691 (Version 1)
Quarter: 2018Q1

REPORT INFORMATION
  Report Type: Spontaneous
  Country: US (occurrence: US)
  Receive Date: 20180130
  Receipt Date: 20180130
  Transmission Date: 20180509
  Serious: No
  Sender: FDA-Public Use
  Company Number: US-BAUSCH-BL-2017-028294

PATIENT
  Age: 56 Year
  Sex: Male
  Weight: 68.1 kg

DRUGS (2)
  1. ZYLET [Suspect]
     Active Substance: LOTEPREDNOL ETABONATE\TOBRAMYCIN
     Indication: FOREIGN BODY SENSATION IN EYES
     Route: 047
     Dates: start: 201709, end: 20170927
  2. ZYLET [Suspect]
     Active Substance: LOTEPREDNOL ETABONATE\TOBRAMYCIN
     Indication: EYE INFLAMMATION
     Route: 047
     Dates: start: 201709, end: 201709

REACTIONS (6)
  - Skin burning sensation [Recovered/Resolved]
  - Chemical burn [Unknown]
  - Eye pain [Recovered/Resolved]
  - Product deposit [Unknown]
  - Pain of skin [Recovered/Resolved]
  - Drug effect decreased [Unknown]

NARRATIVE: CASE EVENT DATE: 201709
